FAERS Safety Report 7016711-8 (Version None)
Quarter: 2010Q3

REPORT INFORMATION
  Report Type: 
  Country: None (occurrence: None)
  Receive Date: 20100927
  Receipt Date: 20100917
  Transmission Date: 20110219
  Serious: Yes (Life-Threatening, Other)
  Sender: FDA-Public Use
  Company Number: JP-ROCHE-724322

PATIENT
  Sex: Male
  Weight: 49 kg

DRUGS (13)
  1. AVASTIN [Suspect]
     Indication: LUNG ADENOCARCINOMA METASTATIC
     Route: 041
     Dates: start: 20100728, end: 20100728
  2. AVASTIN [Suspect]
     Route: 041
     Dates: start: 20100818, end: 20100818
  3. CARBOPLATIN [Concomitant]
     Route: 041
     Dates: start: 20100728, end: 20100728
  4. CARBOPLATIN [Concomitant]
     Route: 041
     Dates: start: 20100818, end: 20100818
  5. ALIMTA [Concomitant]
     Route: 041
     Dates: start: 20100728, end: 20100728
  6. ALIMTA [Concomitant]
     Route: 041
     Dates: start: 20100818, end: 20100818
  7. MEDICON [Concomitant]
     Route: 048
     Dates: start: 20100602
  8. LOXONIN [Concomitant]
     Route: 048
     Dates: start: 20100602
  9. MUCOSTA [Concomitant]
     Route: 048
     Dates: start: 20100602
  10. MYSLEE [Concomitant]
     Route: 048
     Dates: start: 20100709
  11. PANVITAN [Concomitant]
     Dosage: FORM: POWDERED FORM
     Route: 048
     Dates: start: 20100709
  12. ADONA [Concomitant]
     Route: 048
     Dates: start: 20100722
  13. OXYCONTIN [Concomitant]
     Route: 048
     Dates: start: 20100723

REACTIONS (6)
  - BLOOD PRESSURE DECREASED [None]
  - DEPRESSED LEVEL OF CONSCIOUSNESS [None]
  - HAEMOPTYSIS [None]
  - HEART RATE DECREASED [None]
  - NEUTROPHIL COUNT DECREASED [None]
  - PNEUMONIA [None]
